FAERS Safety Report 5883342-2 (Version None)
Quarter: 2008Q3

REPORT INFORMATION
  Report Type: 
  Country: None (occurrence: None)
  Receive Date: 20080912
  Receipt Date: 20080912
  Transmission Date: 20090109
  Serious: Yes (Other)
  Sender: FDA-Public Use
  Company Number: None

PATIENT
  Age: 17 Year
  Sex: Female

DRUGS (2)
  1. BUPROPION SL [Suspect]
     Indication: MAJOR DEPRESSION
     Dosage: 150MG BID PO
     Route: 048
     Dates: start: 20080212
  2. CONCERTA [Concomitant]

REACTIONS (2)
  - GRAND MAL CONVULSION [None]
  - PHARMACEUTICAL PRODUCT COMPLAINT [None]
